FAERS Safety Report 4487688-4 (Version None)
Quarter: 2004Q4

REPORT INFORMATION
  Report Type: 
  Country: None (occurrence: None)
  Receive Date: 20041025
  Receipt Date: 20041014
  Transmission Date: 20050328
  Serious: Yes (Hospitalization)
  Sender: FDA-Public Use
  Company Number: US009754

PATIENT
  Age: 26 Year
  Sex: Female
  Weight: 81.6475 kg

DRUGS (6)
  1. GABITRIL [Suspect]
     Indication: MOOD SWINGS
     Dosage: 2 MG QD ORAL
     Route: 048
     Dates: start: 20010801
  2. GABITRIL [Suspect]
     Indication: MOOD SWINGS
     Dosage: 20 MG QD ORAL
     Route: 048
     Dates: end: 20020228
  3. SERZONE [Suspect]
     Indication: DEPRESSION
     Dosage: 450 MG BID ORAL
     Route: 048
     Dates: start: 20011201, end: 20020228
  4. SERZONE [Suspect]
     Indication: DEPRESSION
     Dosage: 250 MG BID ORAL
     Route: 048
     Dates: start: 20020301
  5. RANITIDINE [Concomitant]
  6. ZYRTEC [Concomitant]

REACTIONS (9)
  - ASTERIXIS [None]
  - BALANCE DISORDER [None]
  - FEELING ABNORMAL [None]
  - MUSCLE TWITCHING [None]
  - MYOCLONUS [None]
  - PSYCHOMOTOR RETARDATION [None]
  - STATUS EPILEPTICUS [None]
  - TREMOR [None]
  - VENOUS ANGIOMA OF BRAIN [None]
